FAERS Safety Report 9630876 (Version 2)
Quarter: 2013Q4

REPORT INFORMATION
  Report Type: Spontaneous
  Country: JP (occurrence: JP)
  Receive Date: 20131018
  Receipt Date: 20131108
  Transmission Date: 20140711
  Serious: Yes (Death)
  Sender: FDA-Public Use
  Company Number: JP-OTSUKA-JP-2013-14447

PATIENT
  Age: 59 Year
  Sex: Female

DRUGS (2)
  1. SAMSCA [Suspect]
     Indication: CIRRHOSIS ALCOHOLIC
     Dosage: UNK
     Route: 048
     Dates: start: 20120801, end: 20130115
  2. SAMSCA [Suspect]
     Indication: ASCITES

REACTIONS (1)
  - Hepatic cirrhosis [Fatal]
